FAERS Safety Report 9732504 (Version 2)
Quarter: 2013Q4

REPORT INFORMATION
  Report Type: Spontaneous
  Country: JP (occurrence: JP)
  Receive Date: 20131204
  Receipt Date: 20131226
  Transmission Date: 20140711
  Serious: Yes (Hospitalization)
  Sender: FDA-Public Use
  Company Number: PHHY2013JP137063

PATIENT
  Age: 84 Year
  Sex: Female
  Weight: 35 kg

DRUGS (3)
  1. WARFARIN [Suspect]
     Indication: PULMONARY EMBOLISM
     Dosage: 1.5 MG, QD
  2. HEPARIN [Suspect]
     Dosage: 10000 U, QD
  3. BERAPROST SODIUM [Concomitant]
     Indication: PULMONARY EMBOLISM
     Dosage: 60 UG, QD

REACTIONS (3)
  - Pulmonary hypertension [Unknown]
  - Hypoxia [Unknown]
  - Haemorrhage [Unknown]
